FAERS Safety Report 15931581 (Version 3)
Quarter: 2019Q2

REPORT INFORMATION
  Report Type: Report from Study
  Country: US (occurrence: US)
  Receive Date: 20190207
  Receipt Date: 20190611
  Transmission Date: 20190711
  Serious: Yes (Other)
  Sender: FDA-Public Use
  Company Number: PHEH2019US005304

PATIENT
  Sex: Male

DRUGS (1)
  1. ENTRESTO [Suspect]
     Active Substance: SACUBITRIL\VALSARTAN
     Indication: PRODUCT USED FOR UNKNOWN INDICATION
     Dosage: 50 MG (49 MG SACUBITRIL/ 51 MG VALSARTAN), BID
     Route: 048

REACTIONS (8)
  - Dizziness [Unknown]
  - Chondrocalcinosis pyrophosphate [Unknown]
  - Dyspnoea [Unknown]
  - Blood pressure decreased [Unknown]
  - Cough [Unknown]
  - Bronchiectasis [Unknown]
  - Productive cough [Unknown]
  - Malaise [Unknown]
